FAERS Safety Report 10997203 (Version 1)
Quarter: 2015Q2

REPORT INFORMATION
  Report Type: Spontaneous
  Country: US (occurrence: US)
  Receive Date: 20150408
  Receipt Date: 20150408
  Transmission Date: 20150821
  Serious: No
  Sender: FDA-Public Use
  Company Number: US-BANPHARM-20142280

PATIENT
  Age: 73 Year
  Sex: Female
  Weight: 68.04 kg

DRUGS (8)
  1. GABAPENTIN. [Concomitant]
     Active Substance: GABAPENTIN
  2. LOSARTAN [Concomitant]
     Active Substance: LOSARTAN
  3. FENOFIBRATE. [Concomitant]
     Active Substance: FENOFIBRATE
  4. METOPROLOL [Concomitant]
     Active Substance: METOPROLOL
  5. HYDROCHLOROTHIAZIDE. [Concomitant]
     Active Substance: HYDROCHLOROTHIAZIDE
  6. ALEVE [Suspect]
     Active Substance: NAPROXEN SODIUM
     Dosage: 2 DF, BID,
     Route: 048
  7. ALEVE [Suspect]
     Active Substance: NAPROXEN SODIUM
     Indication: BACK PAIN
     Dosage: PRN,
     Route: 048
     Dates: start: 201302
  8. BAYER ASPIRIN 81 MG [Concomitant]
     Active Substance: ASPIRIN
     Dosage: 1 DF, QD,
     Route: 048

REACTIONS (1)
  - Nausea [Recovered/Resolved]

NARRATIVE: CASE EVENT DATE: 201302
